FAERS Safety Report 9638928 (Version 1)
Quarter: 2013Q4

REPORT INFORMATION
  Report Type: Spontaneous
  Country: JP (occurrence: None)
  Receive Date: 20131018
  Receipt Date: 20131018
  Transmission Date: 20140711
  Serious: Yes (Other)
  Sender: FDA-Public Use
  Company Number: 2013P1020098

PATIENT
  Age: 23 Year
  Sex: Female

DRUGS (6)
  1. ACYCLOVIR [Suspect]
     Indication: HERPES ZOSTER
     Route: 042
  2. ACYCLOVIR [Suspect]
     Indication: HERPES VIRUS INFECTION
     Route: 042
  3. LANSOPRAZOLE [Suspect]
  4. VORICONAZOLE [Suspect]
  5. TACROLIMUS [Suspect]
  6. REBAMIPIDE [Suspect]

REACTIONS (2)
  - Hepatitis acute [None]
  - Lymphocyte stimulation test positive [None]
